FAERS Safety Report 19710337 (Version 1)
Quarter: 2021Q3

REPORT INFORMATION
  Report Type: Spontaneous
  Country: US (occurrence: US)
  Receive Date: 20210817
  Receipt Date: 20210817
  Transmission Date: 20211014
  Serious: No
  Sender: FDA-Public Use
  Company Number: US-SA-2021SA270629

PATIENT
  Sex: Female

DRUGS (5)
  1. KETOROLAC [Concomitant]
     Active Substance: KETOROLAC TROMETHAMINE
  2. DUPIXENT [Suspect]
     Active Substance: DUPILUMAB
     Indication: DERMATITIS ATOPIC
     Route: 058
     Dates: start: 20200225
  3. FLUCONAZOLE. [Concomitant]
     Active Substance: FLUCONAZOLE
  4. SYMBICORT [Concomitant]
     Active Substance: BUDESONIDE\FORMOTEROL FUMARATE DIHYDRATE
  5. BUDESONIDE;FORMOTEROL [Concomitant]
     Active Substance: BUDESONIDE\FORMOTEROL

REACTIONS (1)
  - COVID-19 [Recovered/Resolved]
